FAERS Safety Report 7822114-6 (Version None)
Quarter: 2011Q4

REPORT INFORMATION
  Report Type: 
  Country: None (occurrence: None)
  Receive Date: 20111018
  Receipt Date: 20110418
  Transmission Date: 20120403
  Serious: No
  Sender: FDA-Public Use
  Company Number: US-ASTRAZENECA-2011SE13197

PATIENT
  Age: 41 Year
  Sex: Female

DRUGS (1)
  1. SYMBICORT [Suspect]
     Route: 055

REACTIONS (3)
  - GASTRIC ULCER [None]
  - ABDOMINAL PAIN UPPER [None]
  - GASTROOESOPHAGEAL REFLUX DISEASE [None]
